FAERS Safety Report 9437005 (Version 2)
Quarter: 2013Q3

REPORT INFORMATION
  Report Type: Spontaneous
  Country: JP (occurrence: JP)
  Receive Date: 20130802
  Receipt Date: 20130901
  Transmission Date: 20140515
  Serious: Yes (Hospitalization, Other)
  Sender: FDA-Public Use
  Company Number: JP-PFIZER INC-2013223011

PATIENT
  Age: 32 Year
  Sex: Female

DRUGS (3)
  1. JZOLOFT [Suspect]
     Indication: DEPRESSION
     Dosage: 75 MG, 1X/DAY
     Route: 048
     Dates: start: 201112, end: 20121217
  2. JZOLOFT [Suspect]
     Dosage: 25 MG/DAY
     Route: 048
     Dates: start: 20130525, end: 20130525
  3. LAMICTAL [Concomitant]
     Indication: MOOD ALTERED
     Dosage: 100 MG, 1X/DAY
     Route: 048
     Dates: start: 20120428, end: 20121217

REACTIONS (2)
  - Gestational diabetes [Unknown]
  - Dyslipidaemia [Unknown]
